FAERS Safety Report 19214011 (Version 3)
Quarter: 2021Q3

REPORT INFORMATION
  Report Type: Report from Study
  Country: US (occurrence: US)
  Receive Date: 20210504
  Receipt Date: 20210910
  Transmission Date: 20211014
  Serious: Yes (Life-Threatening, Other)
  Sender: FDA-Public Use
  Company Number: US-GILEAD-2021-0522402

PATIENT
  Age: 36 Year
  Sex: Male

DRUGS (36)
  1. PLACEBO [Suspect]
     Active Substance: UNSPECIFIED INGREDIENT
     Indication: COVID-19
     Dosage: UNK UNK, BID
     Route: 048
     Dates: start: 20210131, end: 20210228
  2. GUAIFENESIN. [Concomitant]
     Active Substance: GUAIFENESIN
  3. POTASSIUM [Concomitant]
     Active Substance: POTASSIUM
  4. CEFEPIME [Concomitant]
     Active Substance: CEFEPIME HYDROCHLORIDE
  5. REMDESIVIR. [Suspect]
     Active Substance: REMDESIVIR
     Indication: COVID-19
     Dosage: UNK, QD
     Route: 042
     Dates: start: 20210201, end: 20210201
  6. HYDROMORPHONE HYDROCHLORIDE. [Concomitant]
     Active Substance: HYDROMORPHONE HYDROCHLORIDE
  7. PROPOFOL. [Concomitant]
     Active Substance: PROPOFOL
  8. CISATRACURIUM. [Concomitant]
     Active Substance: CISATRACURIUM
  9. FUROSEMIDE. [Concomitant]
     Active Substance: FUROSEMIDE
  10. LORAZEPAM. [Concomitant]
     Active Substance: LORAZEPAM
  11. FENTANYL CITRATE. [Concomitant]
     Active Substance: FENTANYL CITRATE
  12. ENOXAPARIN [Concomitant]
     Active Substance: ENOXAPARIN
  13. BLINDED CENICRIVIROC [Suspect]
     Active Substance: CENICRIVIROC
     Indication: COVID-19
     Dosage: UNK UNK, BID
     Route: 048
     Dates: start: 20210131, end: 20210228
  14. DEXAMETHASONE. [Concomitant]
     Active Substance: DEXAMETHASONE
  15. BISACODYL. [Concomitant]
     Active Substance: BISACODYL
  16. MACROGOL 3350 [Concomitant]
     Active Substance: POLYETHYLENE GLYCOL 3350
  17. MELATONIN [Concomitant]
     Active Substance: MELATONIN
  18. PARACETAMOL [Concomitant]
     Active Substance: ACETAMINOPHEN
  19. EPINEPHRINE. [Concomitant]
     Active Substance: EPINEPHRINE
  20. NOREPINEPHRINE BITARTRATE. [Concomitant]
     Active Substance: NOREPINEPHRINE BITARTRATE
  21. AMLODIPINE BESILATE [Concomitant]
     Active Substance: AMLODIPINE BESYLATE
  22. CAPTOPRIL. [Concomitant]
     Active Substance: CAPTOPRIL
  23. HYDRALAZINE [Concomitant]
     Active Substance: HYDRALAZINE HYDROCHLORIDE
  24. MAGNESIUM [Concomitant]
     Active Substance: MAGNESIUM
  25. OXYCODONE [Concomitant]
     Active Substance: OXYCODONE
  26. QUETIAPINE. [Concomitant]
     Active Substance: QUETIAPINE
  27. AZITHROMYCIN ANHYDROUS. [Concomitant]
     Active Substance: AZITHROMYCIN ANHYDROUS
  28. GLUCAGON. [Concomitant]
     Active Substance: GLUCAGON
  29. DOCUSATE SODIUM;SENNOSIDE A+B [Concomitant]
     Active Substance: DOCUSATE SODIUM\SENNOSIDES A AND B
  30. LABETALOL HYDROCHLORIDE. [Concomitant]
     Active Substance: LABETALOL HYDROCHLORIDE
  31. LISINOPRIL. [Concomitant]
     Active Substance: LISINOPRIL
  32. TRAZODONE [Concomitant]
     Active Substance: TRAZODONE HYDROCHLORIDE
  33. VANCOMYCIN [Concomitant]
     Active Substance: VANCOMYCIN
  34. FAMOTIDINE. [Concomitant]
     Active Substance: FAMOTIDINE
  35. METOCLOPRAMIDE. [Concomitant]
     Active Substance: METOCLOPRAMIDE
  36. PIPERACILLIN SODIUM;TAZOBACTAM SODIUM [Concomitant]
     Active Substance: PIPERACILLIN SODIUM\TAZOBACTAM SODIUM

REACTIONS (1)
  - Pneumonia bacterial [Recovered/Resolved]

NARRATIVE: CASE EVENT DATE: 20210214
